FAERS Safety Report 4695282-5 (Version None)
Quarter: 2005Q2

REPORT INFORMATION
  Report Type: 
  Country: None (occurrence: None)
  Receive Date: 20050608
  Receipt Date: 20050106
  Transmission Date: 20051028
  Serious: Yes (Other)
  Sender: FDA-Public Use
  Company Number: 391966

PATIENT

DRUGS (1)
  1. ACCUTANE [Suspect]
     Indication: ACNE
     Dosage: 20 MG
     Dates: start: 20040411, end: 20050203

REACTIONS (3)
  - NO ADVERSE EFFECT [None]
  - PREGNANCY [None]
  - TRANSMISSION OF DRUG VIA SEMEN [None]
